FAERS Safety Report 6400708-2 (Version None)
Quarter: 2009Q4

REPORT INFORMATION
  Report Type: 
  Country: None (occurrence: None)
  Receive Date: 20091014
  Receipt Date: 20091002
  Transmission Date: 20100525
  Serious: Yes (Death)
  Sender: FDA-Public Use
  Company Number: FR-ELI_LILLY_AND_COMPANY-FR200907000124

PATIENT
  Age: 74 Year
  Sex: Female

DRUGS (4)
  1. FORTEO [Suspect]
     Indication: OSTEOPOROSIS
     Dosage: 20 UG, DAILY (1/D)
     Route: 058
     Dates: start: 20081119
  2. TAHOR [Concomitant]
     Indication: HYPERCHOLESTEROLAEMIA
     Dosage: UNK, UNKNOWN
     Route: 065
  3. DOLIPRANE [Concomitant]
     Dosage: UNK, UNKNOWN
     Route: 065
  4. UVEDOSE [Concomitant]
     Dosage: UNK, MONTHLY (1/M)
     Route: 048
     Dates: start: 20080801

REACTIONS (2)
  - CARDIAC ARREST [None]
  - PALPITATIONS [None]
